FAERS Safety Report 5211332-1 (Version None)
Quarter: 2006Q4

REPORT INFORMATION
  Report Type: 
  Country: None (occurrence: None)
  Receive Date: 20061130
  Receipt Date: 20060517
  Transmission Date: 20070319
  Serious: Yes (Other)
  Sender: FDA-Public Use
  Company Number: WAES 0605USA03380

PATIENT
  Age: 80 Year
  Sex: Female

DRUGS (4)
  1. FOSAMAX [Suspect]
     Dosage: PO
     Route: 048
  2. REMICADE [Concomitant]
  3. CORTICOSTEROIDS (UNSPECIFIED) [Concomitant]
  4. METHOTREXATE [Concomitant]

REACTIONS (1)
  - OSTEONECROSIS [None]
